FAERS Safety Report 7714972-0 (Version None)
Quarter: 2011Q3

REPORT INFORMATION
  Report Type: 
  Country: None (occurrence: None)
  Receive Date: 20110829
  Receipt Date: 20110516
  Transmission Date: 20111222
  Serious: No
  Sender: FDA-Public Use
  Company Number: US-ASTRAZENECA-2011SE29537

PATIENT
  Age: 83 Year
  Sex: Female
  Weight: 45.4 kg

DRUGS (6)
  1. ZOCOR [Concomitant]
  2. VITAMINS C [Concomitant]
  3. CALCIUM WITH VITAMIN D [Concomitant]
  4. VIMOVO [Suspect]
     Indication: OSTEOARTHRITIS
     Dosage: 500/20 MG BID
     Route: 048
     Dates: start: 20110510
  5. ZETIA [Concomitant]
  6. VITAMIN D [Concomitant]

REACTIONS (1)
  - EYE SWELLING [None]
